FAERS Safety Report 6906838-0 (Version None)
Quarter: 2010Q3

REPORT INFORMATION
  Report Type: 
  Country: None (occurrence: None)
  Receive Date: 20100804
  Receipt Date: 20100726
  Transmission Date: 20110219
  Serious: Yes (Other)
  Sender: FDA-Public Use
  Company Number: BE-ELI_LILLY_AND_COMPANY-BE201006006051

PATIENT
  Sex: Male
  Weight: 81 kg

DRUGS (5)
  1. BYETTA [Suspect]
     Dosage: 5 UG, 2/D
     Route: 065
     Dates: start: 20100212, end: 20100301
  2. BYETTA [Suspect]
     Dosage: 10 UG, 2/D
     Dates: start: 20100301
  3. GLYBURIDE [Concomitant]
     Indication: TYPE 2 DIABETES MELLITUS
     Dosage: UNK, UNKNOWN
     Route: 065
     Dates: start: 19990101
  4. METFORMIN HCL [Concomitant]
     Indication: TYPE 2 DIABETES MELLITUS
     Dosage: UNK, UNKNOWN
     Route: 065
     Dates: start: 19990101
  5. LIPANTHYL [Concomitant]
     Indication: DYSLIPIDAEMIA

REACTIONS (1)
  - DIFFUSE LARGE B-CELL LYMPHOMA [None]
